FAERS Safety Report 24992304 (Version 2)
Quarter: 2025Q1

REPORT INFORMATION
  Report Type: Spontaneous
  Country: PT (occurrence: PT)
  Receive Date: 20250220
  Receipt Date: 20250310
  Transmission Date: 20250409
  Serious: No
  Sender: ALEXION PHARMACEUTICALS
  Company Number: PT-AstraZeneca-CH-00808759AM

PATIENT

DRUGS (1)
  1. SYMBICORT [Suspect]
     Active Substance: BUDESONIDE\FORMOTEROL FUMARATE DIHYDRATE
     Indication: Asthma
     Dosage: 1 INHALATION IN THE MORNING AND 1 INHALATION AT NIGHT

REACTIONS (6)
  - Cough [Unknown]
  - Fatigue [Unknown]
  - Device malfunction [Recovered/Resolved]
  - Inappropriate schedule of product administration [Unknown]
  - Device use issue [Unknown]
  - Product after taste [Unknown]
